FAERS Safety Report 24388762 (Version 1)
Quarter: 2024Q4

REPORT INFORMATION
  Report Type: Spontaneous
  Country: GB (occurrence: GB)
  Receive Date: 20241002
  Receipt Date: 20241002
  Transmission Date: 20250114
  Serious: Yes (Other)
  Sender: AMGEN
  Company Number: GB-AMGEN-GBRSP2024193636

PATIENT

DRUGS (1)
  1. ADALIMUMAB [Suspect]
     Active Substance: ADALIMUMAB
     Indication: Scleritis
     Dosage: UNK
     Route: 065

REACTIONS (12)
  - Neuropathy peripheral [Unknown]
  - Scleritis [Unknown]
  - Drug effective for unapproved indication [Unknown]
  - Drug ineffective for unapproved indication [Unknown]
  - Drug specific antibody present [Unknown]
  - Gingival bleeding [Unknown]
  - Infection [Unknown]
  - Injection site pain [Unknown]
  - Headache [Unknown]
  - Nausea [Unknown]
  - Treatment noncompliance [Unknown]
  - Off label use [Unknown]
